FAERS Safety Report 20864820 (Version 4)
Quarter: 2023Q4

REPORT INFORMATION
  Report Type: Spontaneous
  Country: US (occurrence: US)
  Receive Date: 20220524
  Receipt Date: 20231012
  Transmission Date: 20240110
  Serious: Yes (Other)
  Sender: FDA-Public Use
  Company Number: US-GILEAD-2022-0582674

PATIENT
  Age: 24 Year
  Sex: Male
  Weight: 81.633 kg

DRUGS (25)
  1. COMPLERA [Suspect]
     Active Substance: EMTRICITABINE\RILPIVIRINE HYDROCHLORIDE\TENOFOVIR DISOPROXIL FUMARATE
     Indication: HIV infection
     Dosage: UNK
     Route: 048
     Dates: start: 2011
  2. COMPLERA [Suspect]
     Active Substance: EMTRICITABINE\RILPIVIRINE HYDROCHLORIDE\TENOFOVIR DISOPROXIL FUMARATE
     Dosage: UNK
     Route: 048
     Dates: start: 201410, end: 201607
  3. ATRIPLA [Suspect]
     Active Substance: EFAVIRENZ\EMTRICITABINE\TENOFOVIR DISOPROXIL FUMARATE
     Indication: HIV infection
     Dosage: UNK
     Route: 048
     Dates: start: 201105, end: 201409
  4. EPIVIR [Concomitant]
     Active Substance: LAMIVUDINE
  5. ISENTRESS [Concomitant]
     Active Substance: RALTEGRAVIR POTASSIUM
  6. JULUCA [Concomitant]
     Active Substance: DOLUTEGRAVIR SODIUM\RILPIVIRINE HYDROCHLORIDE
  7. NORVIR [Concomitant]
     Active Substance: RITONAVIR
  8. ODEFSEY [Concomitant]
     Active Substance: EMTRICITABINE\RILPIVIRINE HYDROCHLORIDE\TENOFOVIR ALAFENAMIDE FUMARATE
  9. PIFELTRO [Concomitant]
     Active Substance: DORAVIRINE
  10. PREZISTA [Concomitant]
     Active Substance: DARUNAVIR ETHANOLATE
  11. TIVICAY [Concomitant]
     Active Substance: DOLUTEGRAVIR SODIUM
  12. VIRAMUNE XR [Concomitant]
     Active Substance: NEVIRAPINE
  13. ZIAGEN [Concomitant]
     Active Substance: ABACAVIR SULFATE
  14. ACYCLOVIR [Concomitant]
     Active Substance: ACYCLOVIR
  15. AMBIEN [Concomitant]
     Active Substance: ZOLPIDEM TARTRATE
  16. ATIVAN [Concomitant]
     Active Substance: LORAZEPAM
  17. AZITHROMYCIN [Concomitant]
     Active Substance: AZITHROMYCIN
  18. BICILLIN [BENZATHINE BENZYLPENICILLIN] [Concomitant]
  19. DEXTROAMPHET SACCHARAT, AMPHET ASPARTATE, DEXTROAMPHET SULFATE AND AMP [Concomitant]
     Active Substance: AMPHETAMINE ASPARTATE\AMPHETAMINE ASPARTATE MONOHYDRATE\AMPHETAMINE SULFATE\DEXTROAMPHETAMINE SACCHA
  20. ESCITALOPRAM [Concomitant]
     Active Substance: ESCITALOPRAM OXALATE
  21. EVEKEO [Concomitant]
     Active Substance: AMPHETAMINE SULFATE
  22. FLONASE [Concomitant]
     Active Substance: FLUTICASONE PROPIONATE
  23. IVERMECTIN [Concomitant]
     Active Substance: IVERMECTIN
  24. ROSUVASTATIN [Concomitant]
     Active Substance: ROSUVASTATIN
  25. VALACYCLOVIR HYDROCHLORIDE [Concomitant]
     Active Substance: VALACYCLOVIR HYDROCHLORIDE

REACTIONS (11)
  - Renal impairment [Unknown]
  - End stage renal disease [Not Recovered/Not Resolved]
  - Glomerulosclerosis [Unknown]
  - Pain [Not Recovered/Not Resolved]
  - Emotional distress [Not Recovered/Not Resolved]
  - Anxiety [Not Recovered/Not Resolved]
  - Anhedonia [Not Recovered/Not Resolved]
  - Hypertension [Not Recovered/Not Resolved]
  - Fatigue [Unknown]
  - Mobility decreased [Not Recovered/Not Resolved]
  - Immune system disorder [Not Recovered/Not Resolved]

NARRATIVE: CASE EVENT DATE: 20160901
